FAERS Safety Report 6279756-1 (Version None)
Quarter: 2009Q3

REPORT INFORMATION
  Report Type: 
  Country: None (occurrence: None)
  Receive Date: 20090723
  Receipt Date: 20090527
  Transmission Date: 20100115
  Serious: Yes (Disabling, Other)
  Sender: FDA-Public Use
  Company Number: US-BAYER-200916707NA

PATIENT
  Age: 51 Year
  Sex: Female
  Weight: 54 kg

DRUGS (22)
  1. MAGNEVIST [Suspect]
     Indication: NUCLEAR MAGNETIC RESONANCE IMAGING
     Dosage: TOTAL DAILY DOSE: 15 ML
     Route: 042
     Dates: start: 20061122, end: 20061122
  2. OMNISCAN [Suspect]
     Indication: NUCLEAR MAGNETIC RESONANCE IMAGING
  3. MULTIHANCE [Suspect]
     Indication: NUCLEAR MAGNETIC RESONANCE IMAGING
  4. PROHANCE [Suspect]
     Indication: NUCLEAR MAGNETIC RESONANCE IMAGING
  5. OPTIMARK [Suspect]
     Indication: NUCLEAR MAGNETIC RESONANCE IMAGING
  6. PROTONIX [Concomitant]
     Indication: GASTROOESOPHAGEAL REFLUX DISEASE
  7. ZOFRAN [Concomitant]
  8. ADVAIR DISKUS 100/50 [Concomitant]
     Indication: ASTHMA
  9. XANAX [Concomitant]
  10. SENSIPAR [Concomitant]
  11. EPOGEN [Concomitant]
     Indication: ANAEMIA
     Dates: start: 20030901
  12. ZYRTEC [Concomitant]
     Indication: MULTIPLE ALLERGIES
  13. RENAGEL [Concomitant]
  14. METOPROLOL TARTRATE [Concomitant]
  15. BENICAR [Concomitant]
  16. ALBUTEROL [Concomitant]
  17. DYNACIRC [Concomitant]
  18. HYDROCODONE BITARTRATE + ACETAMINOPHEN [Concomitant]
  19. COUMADIN [Concomitant]
  20. FERRLECIT [Concomitant]
     Dates: start: 20030901
  21. ZEMPLAR [Concomitant]
  22. FOSRENOL [Concomitant]
     Dates: start: 20060309

REACTIONS (18)
  - ANXIETY [None]
  - EMOTIONAL DISTRESS [None]
  - FIBROSIS [None]
  - GAIT DISTURBANCE [None]
  - GENERAL PHYSICAL HEALTH DETERIORATION [None]
  - HYPERAESTHESIA [None]
  - JOINT RANGE OF MOTION DECREASED [None]
  - MOBILITY DECREASED [None]
  - MUSCLE TIGHTNESS [None]
  - NEPHROGENIC SYSTEMIC FIBROSIS [None]
  - OEDEMA PERIPHERAL [None]
  - PAIN [None]
  - SCAR [None]
  - SKIN HYPERPIGMENTATION [None]
  - SKIN HYPERTROPHY [None]
  - SKIN INDURATION [None]
  - SKIN NECROSIS [None]
  - TENDON DISORDER [None]
